FAERS Safety Report 9918694 (Version 2)
Quarter: 2014Q2

REPORT INFORMATION
  Report Type: Spontaneous
  Country: DE (occurrence: DE)
  Receive Date: 20140224
  Receipt Date: 20140403
  Transmission Date: 20141212
  Serious: Yes (Hospitalization)
  Sender: FDA-Public Use
  Company Number: DE-009507513-1402DEU010357

PATIENT
  Age: 21 Year
  Sex: Female
  Weight: 84 kg

DRUGS (2)
  1. NUVARING [Suspect]
     Indication: CONTRACEPTION
     Dosage: UNK
     Route: 067
     Dates: start: 2010
  2. TOPIRAMATE [Concomitant]
     Indication: EPILEPSY
     Dosage: STRENGTH REPORTED AS 100MG, 150MG, FREQUENCY AS 100MG-0-

REACTIONS (1)
  - Venous thrombosis [Recovered/Resolved]
